FAERS Safety Report 20714312 (Version 1)
Quarter: 2022Q2

REPORT INFORMATION
  Report Type: Report from Study
  Country: US (occurrence: US)
  Receive Date: 20220415
  Receipt Date: 20220415
  Transmission Date: 20220721
  Serious: Yes (Death)
  Sender: FDA-Public Use
  Company Number: US-OTSUKA-2022_023768

PATIENT
  Sex: Male

DRUGS (1)
  1. DEXTROMETHORPHAN HYDROBROMIDE\QUINIDINE SULFATE [Suspect]
     Active Substance: DEXTROMETHORPHAN HYDROBROMIDE\QUINIDINE SULFATE
     Indication: Product used for unknown indication
     Dosage: 1 DF (20-10MG), BID (QUANTITY SUPPLY OF 56 FOR 28 DAYS)
     Route: 065
     Dates: start: 202112

REACTIONS (1)
  - Death [Fatal]
